FAERS Safety Report 7360958-8 (Version None)
Quarter: 2011Q1

REPORT INFORMATION
  Report Type: 
  Country: None (occurrence: None)
  Receive Date: 20110318
  Receipt Date: 20110315
  Transmission Date: 20110831
  Serious: Yes (Other)
  Sender: FDA-Public Use
  Company Number: US-PFIZER INC-2011057230

PATIENT
  Sex: Female
  Weight: 70.3 kg

DRUGS (8)
  1. IBUPROFEN [Concomitant]
     Indication: INFLAMMATION
  2. NEURONTIN [Suspect]
     Indication: OSTEOARTHRITIS
     Dosage: 300 MG, 3X/DAY
     Route: 048
     Dates: start: 20100701, end: 20101001
  3. NEURONTIN [Suspect]
     Indication: FIBROMYALGIA
  4. HYDROCHLOROTHIAZIDE [Concomitant]
     Indication: HYPERTENSION
     Dosage: UNK
  5. TRAMADOL [Concomitant]
     Indication: INFLAMMATION
  6. IBUPROFEN [Concomitant]
     Indication: PAIN
     Dosage: UNK
  7. METOPROLOL [Concomitant]
     Indication: HYPERTENSION
     Dosage: UNK
  8. TRAMADOL [Concomitant]
     Indication: PAIN
     Dosage: UNK

REACTIONS (4)
  - VITAMIN D DECREASED [None]
  - BLOOD POTASSIUM DECREASED [None]
  - VITAMIN B12 DECREASED [None]
  - SPINAL CORD DISORDER [None]
